FAERS Safety Report 4409491-3 (Version None)
Quarter: 2004Q3

REPORT INFORMATION
  Report Type: 
  Country: None (occurrence: None)
  Receive Date: 20040727
  Receipt Date: 20040727
  Transmission Date: 20050211
  Serious: Yes (Hospitalization)
  Sender: FDA-Public Use
  Company Number: None

PATIENT
  Age: 61 Year
  Sex: Male
  Weight: 49 kg

DRUGS (18)
  1. COTRIMOXAZOLE [Suspect]
     Indication: ALLERGENIC DESENSITISATION PROCEDURE
     Dosage: DESENSITIZATION PROTOCOL X 6 DOSES
  2. TEARS [Concomitant]
  3. VIT C [Concomitant]
  4. AQUAPHOR [Concomitant]
  5. ENOXAPARIN SODIUM [Concomitant]
  6. EPOGEN [Concomitant]
  7. PEPCID [Concomitant]
  8. FE S04 [Concomitant]
  9. LASIX [Concomitant]
  10. FOLIC ACID [Concomitant]
  11. HEPARIN [Concomitant]
  12. EUCERIN [Concomitant]
  13. REGLAN [Concomitant]
  14. M.V.I. [Concomitant]
  15. BACTROBAN [Concomitant]
  16. OXYCONTIN [Concomitant]
  17. VIT E [Concomitant]
  18. DAPTOMYCIN [Concomitant]

REACTIONS (3)
  - ELECTROCARDIOGRAM T WAVE INVERSION [None]
  - HYPOTENSION [None]
  - TACHYCARDIA [None]
